FAERS Safety Report 6826477-X (Version None)
Quarter: 2010Q3

REPORT INFORMATION
  Report Type: 
  Country: None (occurrence: None)
  Receive Date: 20100702
  Receipt Date: 20100402
  Transmission Date: 20110219
  Serious: Yes (Other)
  Sender: FDA-Public Use
  Company Number: 228103USA

PATIENT
  Age: 55 Year
  Sex: Female

DRUGS (1)
  1. TOPIRAMATE [Suspect]
     Dosage: (25 MG), ORAL
     Route: 048

REACTIONS (3)
  - COMPLEX PARTIAL SEIZURES [None]
  - CONVULSION [None]
  - DRUG INEFFECTIVE [None]
